FAERS Safety Report 5265725-7 (Version None)
Quarter: 2007Q1

REPORT INFORMATION
  Report Type: 
  Country: None (occurrence: None)
  Receive Date: 20061213
  Receipt Date: 20041110
  Transmission Date: 20070707
  Serious: Yes (Other)
  Sender: FDA-Public Use
  Company Number: 2004UW23187

PATIENT
  Age: 73 Year
  Sex: Male
  Weight: 98.429 kg

DRUGS (7)
  1. IRESSA [Suspect]
     Indication: NON-SMALL CELL LUNG CANCER
     Dates: start: 20040818
  2. PREDNISONE [Concomitant]
  3. WARFARIN SODIUM [Concomitant]
  4. CARDIZEM [Concomitant]
  5. DIGOXIN [Concomitant]
  6. ALBUTEROL [Concomitant]
  7. ADVAIR DISKUS 100/50 [Concomitant]

REACTIONS (3)
  - ABDOMINAL PAIN [None]
  - CHEST PAIN [None]
  - MUSCLE SPASMS [None]
